FAERS Safety Report 14181227 (Version 1)
Quarter: 2017Q4

REPORT INFORMATION
  Report Type: Spontaneous
  Country: US (occurrence: US)
  Receive Date: 20171112
  Receipt Date: 20171112
  Transmission Date: 20180321
  Serious: No
  Sender: FDA-Public Use
  Company Number: US-BAUSCH-BL-2017-010900

PATIENT
  Age: 22 Year
  Sex: Female

DRUGS (2)
  1. ONEXTON [Suspect]
     Active Substance: BENZOYL PEROXIDE\CLINDAMYCIN PHOSPHATE
     Indication: ACNE
     Dosage: 1 APPLICATION
     Route: 061
     Dates: start: 2015
  2. TAZORAC [Concomitant]
     Active Substance: TAZAROTENE
     Indication: ACNE

REACTIONS (1)
  - Drug ineffective [Not Recovered/Not Resolved]
